FAERS Safety Report 16889981 (Version 1)
Quarter: 2019Q4

REPORT INFORMATION
  Report Type: Spontaneous
  Country: US (occurrence: US)
  Receive Date: 20191007
  Receipt Date: 20191007
  Transmission Date: 20200122
  Serious: No
  Sender: FDA-Public Use
  Company Number: US-MYLANLABS-2019M1088508

PATIENT
  Sex: Female
  Weight: 58.96 kg

DRUGS (2)
  1. ELETRIPTAN HYDROBROMIDE TABLETS [Suspect]
     Active Substance: ELETRIPTAN HYDROBROMIDE
     Indication: MIGRAINE
     Dosage: 40 MILLIGRAM, QD (ONCE DAILY AS NEEDED)
     Route: 048
  2. ELETRIPTAN HYDROBROMIDE TABLETS [Suspect]
     Active Substance: ELETRIPTAN HYDROBROMIDE
     Indication: MIGRAINE WITHOUT AURA

REACTIONS (2)
  - No adverse event [Unknown]
  - Drug ineffective [Unknown]
